FAERS Safety Report 9509982 (Version 1)
Quarter: 2013Q3

REPORT INFORMATION
  Report Type: Spontaneous
  Country: US (occurrence: US)
  Receive Date: 20130909
  Receipt Date: 20130909
  Transmission Date: 20140515
  Serious: No
  Sender: FDA-Public Use
  Company Number: US-BRISTOL-MYERS SQUIBB COMPANY-18881367

PATIENT
  Age: 70 Year
  Sex: Female
  Weight: 54.42 kg

DRUGS (1)
  1. ABILIFY [Suspect]
     Dosage: DRUG INTERRUPED 25-APR-2013
     Dates: start: 20130416

REACTIONS (1)
  - Drug ineffective [Unknown]
